FAERS Safety Report 5191548-3 (Version None)
Quarter: 2006Q4

REPORT INFORMATION
  Report Type: 
  Country: None (occurrence: None)
  Receive Date: 20061219
  Receipt Date: 20061208
  Transmission Date: 20070319
  Serious: Yes (Hospitalization, Other)
  Sender: FDA-Public Use
  Company Number: 2006062428

PATIENT
  Age: 54 Year
  Sex: Female

DRUGS (4)
  1. NEURONTIN [Suspect]
     Indication: DIABETIC NEUROPATHY
     Dosage: 100 MG
     Dates: start: 20040212, end: 20040902
  2. NEURONTIN [Suspect]
     Indication: NEUROPATHY PERIPHERAL
     Dosage: 100 MG
     Dates: start: 20040212, end: 20040902
  3. GABAPENTIN [Suspect]
     Indication: DIABETIC NEUROPATHY
     Dosage: 300 MG
     Dates: start: 20050324, end: 20050701
  4. EFFEXOR XR [Concomitant]

REACTIONS (10)
  - ASTHENIA [None]
  - BEREAVEMENT REACTION [None]
  - CRYING [None]
  - DECREASED APPETITE [None]
  - DEPRESSION [None]
  - FEELING OF DESPAIR [None]
  - INSOMNIA [None]
  - INTENTIONAL OVERDOSE [None]
  - OVERDOSE [None]
  - SUICIDE ATTEMPT [None]
